FAERS Safety Report 7675761-9 (Version None)
Quarter: 2011Q3

REPORT INFORMATION
  Report Type: 
  Country: None (occurrence: None)
  Receive Date: 20110810
  Receipt Date: 20110614
  Transmission Date: 20111222
  Serious: Yes (Hospitalization)
  Sender: FDA-Public Use
  Company Number: PHHY2011JP51807

PATIENT
  Age: 5 Year
  Sex: Male

DRUGS (9)
  1. NEORAL [Suspect]
     Dosage: 1 ML, QD
     Route: 048
     Dates: start: 20110605, end: 20110613
  2. PREDNISOLONE [Concomitant]
     Route: 048
  3. MAGNESIUM OXIDE [Concomitant]
  4. NEORAL [Suspect]
     Indication: EPILEPSY
     Dosage: 0.5 ML, BID
     Route: 048
     Dates: start: 20110601, end: 20110604
  5. NEORAL [Suspect]
     Dosage: 1.2 ML, QD
     Route: 048
     Dates: start: 20110614
  6. LAMICTAL [Concomitant]
  7. RISPERDAL [Concomitant]
     Route: 048
  8. VALPROIC ACID [Concomitant]
     Route: 048
  9. NITRAZEPAM [Concomitant]
     Route: 048

REACTIONS (5)
  - HALLUCINATION, AUDITORY [None]
  - HALLUCINATION [None]
  - AGITATION [None]
  - NASOPHARYNGITIS [None]
  - CONFUSIONAL STATE [None]
